FAERS Safety Report 25742097 (Version 1)
Quarter: 2025Q3

REPORT INFORMATION
  Report Type: Spontaneous
  Country: EU (occurrence: EU)
  Receive Date: 20250829
  Receipt Date: 20250829
  Transmission Date: 20251020
  Serious: Yes (Other)
  Sender: AMGEN
  Company Number: EU-AMGEN-ITASP2025166420

PATIENT

DRUGS (1)
  1. ADALIMUMAB [Suspect]
     Active Substance: ADALIMUMAB
     Indication: Behcet^s syndrome
     Route: 065

REACTIONS (8)
  - Behcet^s syndrome [Unknown]
  - Abortion spontaneous [Unknown]
  - Pre-eclampsia [Unknown]
  - Eclampsia [Unknown]
  - Premature delivery [Unknown]
  - Premature labour [Unknown]
  - Off label use [Unknown]
  - Maternal exposure during pregnancy [Unknown]
